FAERS Safety Report 21345664 (Version 1)
Quarter: 2022Q3

REPORT INFORMATION
  Report Type: Report from Study
  Country: CN (occurrence: CN)
  Receive Date: 20220916
  Receipt Date: 20220916
  Transmission Date: 20221027
  Serious: Yes (Hospitalization)
  Sender: FDA-Public Use
  Company Number: CN-NOVARTISPH-NVSC2020CN362865

PATIENT
  Age: 62 Year
  Sex: Male

DRUGS (8)
  1. PLACEBO [Suspect]
     Active Substance: UNSPECIFIED INGREDIENT
     Indication: Adenocarcinoma gastric
     Dosage: 200 MG, Q3W
     Route: 042
     Dates: start: 20200520, end: 20200727
  2. PLACEBO [Suspect]
     Active Substance: UNSPECIFIED INGREDIENT
     Dosage: 200 MG, Q3W
     Route: 042
     Dates: start: 20200826
  3. CAPECITABINE [Suspect]
     Active Substance: CAPECITABINE
     Indication: Adenocarcinoma gastric
     Dosage: 1.5 G MORNING, 2.0G NIGHT
     Route: 048
     Dates: start: 20200520, end: 20200525
  4. CAPECITABINE [Suspect]
     Active Substance: CAPECITABINE
     Dosage: 1.0 G EARLY, 1.5G LATE
     Route: 048
     Dates: start: 20200601, end: 20200810
  5. CAPECITABINE [Suspect]
     Active Substance: CAPECITABINE
     Dosage: 1.0 G EARLY, 1.5G LATE
     Route: 048
     Dates: start: 20200826
  6. OXYCODONE HYDROCHLORIDE [Concomitant]
     Active Substance: OXYCODONE HYDROCHLORIDE
     Indication: Abdominal pain
     Dosage: 40 MG, Q12H
     Route: 048
     Dates: start: 20200416
  7. DUPHALAC [Concomitant]
     Active Substance: LACTULOSE
     Indication: Constipation
     Dosage: 10 ML, TID
     Route: 048
     Dates: start: 20200511
  8. OXYCONTIN [Concomitant]
     Active Substance: OXYCODONE HYDROCHLORIDE
     Indication: Analgesic therapy
     Dosage: 160 MG
     Route: 065
     Dates: start: 20200819

REACTIONS (1)
  - Enteritis infectious [Recovered/Resolved]

NARRATIVE: CASE EVENT DATE: 20200820
